FAERS Safety Report 4922211-9 (Version None)
Quarter: 2006Q1

REPORT INFORMATION
  Report Type: 
  Country: None (occurrence: None)
  Receive Date: 20060224
  Receipt Date: 20050113
  Transmission Date: 20060701
  Serious: Yes (Hospitalization)
  Sender: FDA-Public Use
  Company Number: US-MERCK-0501USA01773

PATIENT
  Age: 32 Year
  Sex: Female
  Weight: 116 kg

DRUGS (2)
  1. VIOXX [Suspect]
     Indication: BACK INJURY
     Route: 048
     Dates: start: 20040726
  2. VIOXX [Suspect]
     Indication: PAIN
     Route: 048
     Dates: start: 20040726

REACTIONS (2)
  - ARTERIAL THROMBOSIS [None]
  - CHEST PAIN [None]
